FAERS Safety Report 7585685-3 (Version None)
Quarter: 2011Q2

REPORT INFORMATION
  Report Type: 
  Country: None (occurrence: None)
  Receive Date: 20110603
  Receipt Date: 20110331
  Transmission Date: 20111010
  Serious: No
  Sender: FDA-Public Use
  Company Number: 201103049

PATIENT
  Age: 66 Year
  Sex: Male
  Weight: 78.9259 kg

DRUGS (5)
  1. FLUOXETINE [Concomitant]
  2. ASPIRIN TAB [Concomitant]
  3. XIAFLEX [Suspect]
     Indication: DUPUYTREN'S CONTRACTURE
     Dosage: 0.58 MG, 1 IN 1 D, INTRALESIONAL, 0.58 MG, 1 IN 1 D, INTRALESIONAL
     Route: 026
     Dates: start: 20110216, end: 20110216
  4. XIAFLEX [Suspect]
     Indication: DUPUYTREN'S CONTRACTURE
     Dosage: 0.58 MG, 1 IN 1 D, INTRALESIONAL, 0.58 MG, 1 IN 1 D, INTRALESIONAL
     Route: 026
     Dates: start: 20110119, end: 20110119
  5. QUINAPRIL [Concomitant]

REACTIONS (1)
  - DRUG INEFFECTIVE [None]
